FAERS Safety Report 20768754 (Version 1)
Quarter: 2022Q2

REPORT INFORMATION
  Report Type: Report from Study
  Country: CA (occurrence: None)
  Receive Date: 20220429
  Receipt Date: 20220429
  Transmission Date: 20220721
  Serious: Yes (Other)
  Sender: FDA-Public Use
  Company Number: CA-PFIZER INC-202200616325

PATIENT
  Age: 78 Year
  Sex: Female

DRUGS (15)
  1. METHOTREXATE [Suspect]
     Active Substance: METHOTREXATE
     Indication: Arthritis
     Route: 048
  2. METHOTREXATE [Suspect]
     Active Substance: METHOTREXATE
     Route: 058
  3. ASPIRIN [Suspect]
     Active Substance: ASPIRIN
     Indication: Product used for unknown indication
     Route: 048
  4. FOLIC ACID [Suspect]
     Active Substance: FOLIC ACID
     Indication: Product used for unknown indication
     Route: 065
  5. INDOMETHACIN [Suspect]
     Active Substance: INDOMETHACIN
     Indication: Product used for unknown indication
     Route: 065
  6. LEFLUNOMIDE [Suspect]
     Active Substance: LEFLUNOMIDE
     Indication: Arthritis
     Route: 048
  7. METOPROLOL [Suspect]
     Active Substance: METOPROLOL
     Indication: Product used for unknown indication
     Route: 048
  8. MORPHINE [Suspect]
     Active Substance: MORPHINE
     Indication: Product used for unknown indication
     Route: 048
  9. PANTOPRAZOLE [Suspect]
     Active Substance: PANTOPRAZOLE
     Indication: Product used for unknown indication
     Route: 048
  10. ACETAMINOPHEN [Concomitant]
     Active Substance: ACETAMINOPHEN
     Route: 048
  11. AMLODIPINE [Concomitant]
     Active Substance: AMLODIPINE BESYLATE
     Route: 065
  12. DESOXIMETASONE [Concomitant]
     Active Substance: DESOXIMETASONE
     Route: 058
  13. EPINEPHRINE BITARTRATE;LIDOCAINE [Concomitant]
     Route: 065
  14. LIDOCAINE HYDROCHLORIDE;METHYLPREDNISOLONE AC [Concomitant]
     Route: 065
  15. ORLISTAT [Concomitant]
     Active Substance: ORLISTAT
     Route: 065

REACTIONS (26)
  - Drug ineffective [Unknown]
  - Arthralgia [Unknown]
  - Bone erosion [Unknown]
  - Dysarthria [Unknown]
  - Exostosis [Unknown]
  - Fatigue [Unknown]
  - Foot deformity [Unknown]
  - Hand deformity [Unknown]
  - Joint dislocation [Unknown]
  - Joint space narrowing [Unknown]
  - Joint swelling [Unknown]
  - Musculoskeletal stiffness [Unknown]
  - Mycobacterium tuberculosis complex test positive [Unknown]
  - Nausea [Unknown]
  - Normocytic anaemia [Unknown]
  - Osteoarthritis [Unknown]
  - Osteopenia [Unknown]
  - Osteosclerosis [Unknown]
  - Pain [Unknown]
  - Rheumatoid arthritis [Unknown]
  - Seronegative arthritis [Unknown]
  - Skin lesion [Unknown]
  - Swelling [Unknown]
  - Synovitis [Unknown]
  - Tendonitis [Unknown]
  - Vomiting [Unknown]
